FAERS Safety Report 4696911-2 (Version None)
Quarter: 2005Q2

REPORT INFORMATION
  Report Type: 
  Country: None (occurrence: None)
  Receive Date: 20050620
  Receipt Date: 20050411
  Transmission Date: 20051028
  Serious: No
  Sender: FDA-Public Use
  Company Number: US-YAMANOUCHI-YPA20050188

PATIENT
  Age: 80 Year
  Sex: Female
  Weight: 50.8029 kg

DRUGS (5)
  1. VESICARE [Suspect]
     Indication: POLLAKIURIA
     Dosage: 5 MG QD PO
     Route: 048
     Dates: start: 20050302, end: 20050330
  2. VESICARE [Suspect]
     Indication: POLLAKIURIA
     Dosage: 10 MG QD PO
     Route: 048
     Dates: start: 20050331
  3. TIMOLOL MALEATE [Concomitant]
  4. VITAMINS [Concomitant]
  5. ENZYGEN [Concomitant]

REACTIONS (2)
  - DRY EYE [None]
  - DRY MOUTH [None]
